FAERS Safety Report 4911956-2 (Version None)
Quarter: 2006Q1

REPORT INFORMATION
  Report Type: 
  Country: None (occurrence: None)
  Receive Date: 20060213
  Receipt Date: 20060203
  Transmission Date: 20060701
  Serious: Yes (Other)
  Sender: FDA-Public Use
  Company Number: HQWYE467414SEP05

PATIENT
  Age: 58 Year
  Sex: Male

DRUGS (3)
  1. EFFEXOR XR [Suspect]
     Indication: ANXIETY
     Dosage: 75 MG 1X PER 1 DAY ORAL
     Route: 048
     Dates: start: 20040601
  2. EFFEXOR XR [Suspect]
     Indication: DEPRESSION
     Dosage: 75 MG 1X PER 1 DAY ORAL
     Route: 048
     Dates: start: 20040601
  3. UNSPECIFIED VITAMINS [Concomitant]

REACTIONS (4)
  - FALL [None]
  - HYPERHIDROSIS [None]
  - LIBIDO DECREASED [None]
  - TRAUMATIC BRAIN INJURY [None]
